FAERS Safety Report 5374227-9 (Version None)
Quarter: 2007Q2

REPORT INFORMATION
  Report Type: 
  Country: None (occurrence: None)
  Receive Date: 20070627
  Receipt Date: 20060927
  Transmission Date: 20071010
  Serious: Yes (Death)
  Sender: FDA-Public Use
  Company Number: 465236

PATIENT
  Age: 79 Year
  Sex: Female

DRUGS (3)
  1. XELODA [Suspect]
     Indication: BREAST CANCER STAGE IV
     Dosage: 2 GRAM DAILY
     Dates: start: 20060228, end: 20060913
  2. PAMIDRONATE (PAMIDRONATE) [Concomitant]
  3. ARANESP [Concomitant]

REACTIONS (1)
  - BREAST CANCER METASTATIC [None]
